FAERS Safety Report 17713132 (Version 1)
Quarter: 2020Q2

REPORT INFORMATION
  Report Type: Report from Study
  Country: None (occurrence: US)
  Receive Date: 20200427
  Receipt Date: 20200427
  Transmission Date: 20200714
  Serious: No
  Sender: FDA-Public Use
  Company Number: US-BIOVITRUM-2020US0214

PATIENT
  Sex: Female

DRUGS (1)
  1. KINERET [Suspect]
     Active Substance: ANAKINRA
     Indication: STILL^S DISEASE
     Route: 058
     Dates: start: 20200109

REACTIONS (25)
  - Pain [Unknown]
  - Upper respiratory tract infection [Unknown]
  - Nasal congestion [Unknown]
  - Erythema [Unknown]
  - Injection site mass [Unknown]
  - Rhinorrhoea [Unknown]
  - Myalgia [Unknown]
  - Tachycardia [Unknown]
  - Anaemia [Unknown]
  - Lymphadenopathy [Unknown]
  - Fracture malunion [Unknown]
  - Red blood cell sedimentation rate increased [Unknown]
  - Mobility decreased [Unknown]
  - Oropharyngeal pain [Unknown]
  - Joint range of motion decreased [Unknown]
  - Musculoskeletal stiffness [Unknown]
  - Stomatitis [Unknown]
  - Pyrexia [Unknown]
  - Rash [Unknown]
  - Off label use [Unknown]
  - Arthralgia [Unknown]
  - Joint noise [Unknown]
  - Chills [Unknown]
  - White blood cell count increased [Unknown]
  - Pruritus [Unknown]
